FAERS Safety Report 8912800 (Version 3)
Quarter: 2014Q2

REPORT INFORMATION
  Report Type: Report from Study
  Country: US (occurrence: US)
  Receive Date: 20121116
  Receipt Date: 20140625
  Transmission Date: 20141212
  Serious: Yes (Death)
  Sender: FDA-Public Use
  Company Number: US-ROCHE-1156364

PATIENT
  Sex: Male
  Weight: 82.27 kg

DRUGS (1)
  1. XOLAIR [Suspect]
     Indication: ASTHMA
     Route: 058

REACTIONS (2)
  - Chronic obstructive pulmonary disease [Fatal]
  - Asthma [Fatal]
